FAERS Safety Report 4705325-8 (Version None)
Quarter: 2005Q3

REPORT INFORMATION
  Report Type: 
  Country: None (occurrence: None)
  Receive Date: 20050701
  Receipt Date: 19970620
  Transmission Date: 20060218
  Serious: Yes (Other)
  Sender: FDA-Public Use
  Company Number: PHHO1997BR04078

PATIENT
  Age: 50 Year
  Sex: Male
  Weight: 74 kg

DRUGS (1)
  1. DIOVAN [Suspect]
     Dosage: 80MG
     Route: 048
     Dates: start: 19970617

REACTIONS (1)
  - HYPERTENSIVE CRISIS [None]
